FAERS Safety Report 6828431-0 (Version None)
Quarter: 2010Q3

REPORT INFORMATION
  Report Type: 
  Country: None (occurrence: None)
  Receive Date: 20100708
  Receipt Date: 20100708
  Transmission Date: 20110219
  Serious: No
  Sender: FDA-Public Use
  Company Number: None

PATIENT
  Age: 9 Year
  Sex: Female
  Weight: 33.5662 kg

DRUGS (2)
  1. DERMA-SMOOTHE/FS [Suspect]
     Dates: start: 20100412, end: 20100626
  2. DERMA-SMOOTHE/FS [Suspect]
     Dates: start: 20100616, end: 20100701

REACTIONS (3)
  - FATIGUE [None]
  - TYPE 1 DIABETES MELLITUS [None]
  - WEIGHT DECREASED [None]
